FAERS Safety Report 10167114 (Version 1)
Quarter: 2014Q2

REPORT INFORMATION
  Report Type: Spontaneous
  Country: US (occurrence: None)
  Receive Date: 20140509
  Receipt Date: 20140509
  Transmission Date: 20141212
  Serious: No
  Sender: FDA-Public Use
  Company Number: None

PATIENT
  Age: 37 Year
  Sex: Female
  Weight: 55.79 kg

DRUGS (1)
  1. MIRVASO [Suspect]
     Indication: ROSACEA
     Route: 061
     Dates: start: 20140430, end: 20140505

REACTIONS (3)
  - Flushing [None]
  - Burning sensation [None]
  - Skin irritation [None]
